FAERS Safety Report 5445020-3 (Version None)
Quarter: 2007Q3

REPORT INFORMATION
  Report Type: 
  Country: None (occurrence: None)
  Receive Date: 20070731
  Receipt Date: 20070328
  Transmission Date: 20080115
  Serious: Yes (Hospitalization)
  Sender: FDA-Public Use
  Company Number: US200704001135

PATIENT
  Age: 58 Year
  Sex: Female
  Weight: 35.3806 kg

DRUGS (10)
  1. BYETTA [Suspect]
     Indication: TYPE 2 DIABETES MELLITUS
     Dosage: 10 UG, 2/D, SUBCUTANEOUS;   5 UG, 2/D, SUBCUTANEOUS
     Route: 058
     Dates: start: 20050901, end: 20051101
  2. BYETTA [Suspect]
     Indication: TYPE 2 DIABETES MELLITUS
     Dosage: 10 UG, 2/D, SUBCUTANEOUS;   5 UG, 2/D, SUBCUTANEOUS
     Route: 058
     Dates: start: 20051101, end: 20061212
  3. GLUCOPHAGE XR (METFORMIN HYDROCHLORIDE) [Concomitant]
  4. MONOPRIL [Concomitant]
  5. CARDIZEM [Concomitant]
  6. LASIX [Concomitant]
  7. SLOW-K [Concomitant]
  8. PLAVIX [Concomitant]
  9. SULINDAC [Concomitant]
  10. PREVACID [Concomitant]

REACTIONS (6)
  - ABDOMINAL DISTENSION [None]
  - BLOOD POTASSIUM INCREASED [None]
  - DECREASED APPETITE [None]
  - DIARRHOEA [None]
  - RENAL FAILURE [None]
  - VOMITING [None]
